FAERS Safety Report 13437229 (Version 6)
Quarter: 2017Q4

REPORT INFORMATION
  Report Type: Report from Study
  Country: DE (occurrence: DE)
  Receive Date: 20170413
  Receipt Date: 20171101
  Transmission Date: 20180320
  Serious: Yes (Hospitalization)
  Sender: FDA-Public Use
  Company Number: PHHY2017DE053645

PATIENT
  Sex: Male
  Weight: 93 kg

DRUGS (8)
  1. NEBIVOLOL. [Concomitant]
     Active Substance: NEBIVOLOL
     Indication: CARDIAC FAILURE
     Dosage: 1 DF (5MG), BID
     Route: 048
     Dates: start: 20131114
  2. TORASEMIDE [Concomitant]
     Active Substance: TORSEMIDE
     Indication: CARDIAC FAILURE
     Dosage: 1.5 DF, QD (1-0.5-0)
     Route: 048
     Dates: start: 20140522
  3. FALITHROM [Concomitant]
     Active Substance: PHENPROCOUMON
     Indication: PRODUCT USED FOR UNKNOWN INDICATION
     Dosage: UNK UKN, UNK
     Route: 065
  4. ENTRESTO [Suspect]
     Active Substance: SACUBITRIL\VALSARTAN
     Dosage: 1 DF (49 SACUBITRIL, 51 VALSARTAN MG), BID
     Route: 048
     Dates: start: 20170208
  5. EPLERENONE. [Concomitant]
     Active Substance: EPLERENONE
     Indication: CARDIAC FAILURE
     Dosage: 1 DF (25MG), QD
     Route: 048
     Dates: start: 20130820
  6. INEGY [Concomitant]
     Active Substance: EZETIMIBE\SIMVASTATIN
     Indication: PRODUCT USED FOR UNKNOWN INDICATION
     Dosage: 1 DF (10/40 MG), UNK
     Route: 065
     Dates: start: 20130820
  7. ENTRESTO [Suspect]
     Active Substance: SACUBITRIL\VALSARTAN
     Indication: CARDIAC FAILURE
     Dosage: 1 DF (24 SACUBITRIL, 26 VALSARTAN MG), BID
     Route: 048
     Dates: start: 20170106, end: 20170208
  8. PANTOZOL [Concomitant]
     Active Substance: PANTOPRAZOLE SODIUM
     Indication: PRODUCT USED FOR UNKNOWN INDICATION
     Dosage: 1 DF, QD
     Route: 065

REACTIONS (7)
  - Ejection fraction decreased [Not Recovered/Not Resolved]
  - Cardiac failure [Recovered/Resolved]
  - Nasopharyngitis [Recovered/Resolved]
  - Left ventricular dysfunction [Unknown]
  - Palpitations [Unknown]
  - Atrial fibrillation [Recovered/Resolved]
  - Pulmonary congestion [Recovered/Resolved]

NARRATIVE: CASE EVENT DATE: 201703
